FAERS Safety Report 5276923-0 (Version None)
Quarter: 2007Q1

REPORT INFORMATION
  Report Type: 
  Country: None (occurrence: None)
  Receive Date: 20070327
  Receipt Date: 20070313
  Transmission Date: 20070707
  Serious: Yes (Other)
  Sender: FDA-Public Use
  Company Number: GBWYE475001FEB07

PATIENT
  Sex: Female
  Weight: 65 kg

DRUGS (2)
  1. ENBREL [Suspect]
     Indication: ANKYLOSING SPONDYLITIS
     Route: 058
     Dates: start: 20070101, end: 20070101
  2. ENBREL [Suspect]
     Dosage: UNKNOWN
     Route: 058

REACTIONS (2)
  - INFUSION RELATED REACTION [None]
  - INJECTION SITE PAIN [None]
